FAERS Safety Report 25021290 (Version 1)
Quarter: 2025Q1

REPORT INFORMATION
  Report Type: Spontaneous
  Country: US (occurrence: US)
  Receive Date: 20250228
  Receipt Date: 20250228
  Transmission Date: 20250409
  Serious: No
  Sender: STRIDES
  Company Number: US-STRIDES ARCOLAB LIMITED-2025SP001864

PATIENT
  Age: 48 Year
  Sex: Female

DRUGS (15)
  1. TACROLIMUS [Suspect]
     Active Substance: TACROLIMUS
     Indication: Topical steroid withdrawal reaction
     Route: 065
  2. TACROLIMUS [Suspect]
     Active Substance: TACROLIMUS
     Indication: Erythema
  3. HYDROXYZINE HYDROCHLORIDE [Suspect]
     Active Substance: HYDROXYZINE HYDROCHLORIDE
     Indication: Topical steroid withdrawal reaction
     Route: 065
  4. HYDROXYZINE HYDROCHLORIDE [Suspect]
     Active Substance: HYDROXYZINE HYDROCHLORIDE
     Indication: Erythema
  5. CYCLOSPORINE [Suspect]
     Active Substance: CYCLOSPORINE
     Indication: Topical steroid withdrawal reaction
     Route: 065
  6. CYCLOSPORINE [Suspect]
     Active Substance: CYCLOSPORINE
     Indication: Erythema
  7. METHOTREXATE [Suspect]
     Active Substance: METHOTREXATE
     Indication: Topical steroid withdrawal reaction
     Route: 065
  8. METHOTREXATE [Suspect]
     Active Substance: METHOTREXATE
     Indication: Erythema
  9. TRIAMCINOLONE [Concomitant]
     Active Substance: TRIAMCINOLONE
     Indication: Steroid therapy
     Route: 061
  10. FLUTICASONE [Concomitant]
     Active Substance: FLUTICASONE
     Indication: Steroid therapy
     Route: 061
  11. MOMETASONE [Concomitant]
     Active Substance: MOMETASONE
     Indication: Steroid therapy
     Route: 061
  12. DUPILUMAB [Concomitant]
     Active Substance: DUPILUMAB
     Indication: Topical steroid withdrawal reaction
     Route: 065
  13. DUPILUMAB [Concomitant]
     Active Substance: DUPILUMAB
     Indication: Erythema
  14. CRISABOROLE [Concomitant]
     Active Substance: CRISABOROLE
     Indication: Topical steroid withdrawal reaction
     Route: 065
  15. CRISABOROLE [Concomitant]
     Active Substance: CRISABOROLE
     Indication: Erythema

REACTIONS (1)
  - Off label use [Unknown]
